FAERS Safety Report 20958297 (Version 1)
Quarter: 2022Q2

REPORT INFORMATION
  Report Type: Spontaneous
  Country: US (occurrence: None)
  Receive Date: 20220613
  Receipt Date: 20220613
  Transmission Date: 20220721
  Serious: Yes (Other)
  Sender: FDA-Public Use
  Company Number: None

PATIENT
  Age: 40 Year
  Sex: Male
  Weight: 95.25 kg

DRUGS (1)
  1. .DELTA.8-TETRAHYDROCANNABINOL\HERBALS [Suspect]
     Active Substance: .DELTA.8-TETRAHYDROCANNABINOL\HERBALS
     Indication: Product used for unknown indication
     Route: 048

REACTIONS (6)
  - Nausea [None]
  - Vomiting [None]
  - Tachycardia [None]
  - Dizziness [None]
  - Conjunctival hyperaemia [None]
  - Anxiety [None]

NARRATIVE: CASE EVENT DATE: 20220613
